FAERS Safety Report 5404767-5 (Version None)
Quarter: 2007Q3

REPORT INFORMATION
  Report Type: 
  Country: None (occurrence: None)
  Receive Date: 20070731
  Receipt Date: 20070723
  Transmission Date: 20080115
  Serious: Yes (Hospitalization, Other)
  Sender: FDA-Public Use
  Company Number: 2007327306

PATIENT
  Age: 22 Month
  Sex: Male
  Weight: 8.2 kg

DRUGS (1)
  1. BENADRYL [Suspect]
     Dosage: EVERYDAY, ORAL
     Route: 048
     Dates: start: 20070107

REACTIONS (3)
  - DECREASED APPETITE [None]
  - DEHYDRATION [None]
  - WEIGHT DECREASED [None]
